FAERS Safety Report 9192798 (Version 2)
Quarter: 2013Q2

REPORT INFORMATION
  Report Type: Spontaneous
  Country: GB (occurrence: GB)
  Receive Date: 20130327
  Receipt Date: 20130520
  Transmission Date: 20140414
  Serious: Yes (Other)
  Sender: FDA-Public Use
  Company Number: GB-PFIZER INC-2013093114

PATIENT
  Sex: Male

DRUGS (1)
  1. SERTRALINE HCL [Suspect]
     Dosage: 100 MG, UNK

REACTIONS (8)
  - Overdose [Unknown]
  - Renal impairment [Unknown]
  - Hypertension [Unknown]
  - Depressed mood [Unknown]
  - Urethral haemorrhage [Unknown]
  - Malaise [Unknown]
  - Migraine [Unknown]
  - Diarrhoea [Unknown]
